FAERS Safety Report 21423761 (Version 3)
Quarter: 2022Q4

REPORT INFORMATION
  Report Type: Spontaneous
  Country: CO (occurrence: CO)
  Receive Date: 20221007
  Receipt Date: 20221107
  Transmission Date: 20230112
  Serious: Yes (Hospitalization)
  Sender: FDA-Public Use
  Company Number: CO-VERTEX PHARMACEUTICALS-2022-014810

PATIENT
  Age: 12 Year
  Sex: Male
  Weight: 24 kg

DRUGS (5)
  1. TRIKAFTA [Suspect]
     Active Substance: ELEXACAFTOR\IVACAFTOR\TEZACAFTOR
     Indication: Cystic fibrosis
     Dosage: UNK FREQ
     Route: 048
     Dates: start: 20220325, end: 20220929
  2. ALBUTEROL [Concomitant]
     Active Substance: ALBUTEROL
     Indication: Cystic fibrosis
     Dosage: 10 DROPS
     Route: 055
  3. TOBRAMYCIN [Concomitant]
     Active Substance: TOBRAMYCIN
     Indication: Cystic fibrosis
     Dosage: UNK, BID
  4. DORNASA ALFA [Concomitant]
     Indication: Cystic fibrosis
     Dosage: 2,5/2 MG/ML
     Route: 055
  5. SALMETEROL [Concomitant]
     Active Substance: SALMETEROL
     Indication: Cystic fibrosis
     Dosage: UNK, BID

REACTIONS (1)
  - Infective pulmonary exacerbation of cystic fibrosis [Recovering/Resolving]

NARRATIVE: CASE EVENT DATE: 20220926
